FAERS Safety Report 6027468-1 (Version None)
Quarter: 2009Q1

REPORT INFORMATION
  Report Type: 
  Country: None (occurrence: None)
  Receive Date: 20090105
  Receipt Date: 20081223
  Transmission Date: 20090719
  Serious: No
  Sender: FDA-Public Use
  Company Number: JP-EISAI MEDIAL RESEARCH-E3810-02419-SPO-JP

PATIENT
  Age: 58 Year
  Sex: Female

DRUGS (3)
  1. RABEPRAZOLE SODIUM [Suspect]
     Dosage: UNKNOWN
     Route: 048
  2. COTRIM [Suspect]
     Dosage: UNKNOWN
     Route: 048
  3. TAKEPRON [Concomitant]
     Route: 048

REACTIONS (3)
  - AMYLOIDOSIS [None]
  - HENOCH-SCHONLEIN PURPURA [None]
  - TOXIC EPIDERMAL NECROLYSIS [None]
